FAERS Safety Report 6483805-5 (Version None)
Quarter: 2009Q4

REPORT INFORMATION
  Report Type: 
  Country: None (occurrence: None)
  Receive Date: 20091209
  Receipt Date: 20090508
  Transmission Date: 20100525
  Serious: No
  Sender: FDA-Public Use
  Company Number: US-AMGEN-KDL346450

PATIENT
  Sex: Female

DRUGS (3)
  1. ENBREL [Suspect]
     Indication: RHEUMATOID ARTHRITIS
  2. PLAQUENIL [Concomitant]
  3. ARAVA [Concomitant]
     Route: 048

REACTIONS (3)
  - ENDODONTIC PROCEDURE [None]
  - ERYTHEMA [None]
  - SKIN LACERATION [None]
